FAERS Safety Report 11924964 (Version 5)
Quarter: 2016Q3

REPORT INFORMATION
  Report Type: Report from Study
  Country: US (occurrence: US)
  Receive Date: 20160118
  Receipt Date: 20160920
  Transmission Date: 20161109
  Serious: Yes (Other)
  Sender: FDA-Public Use
  Company Number: US-BAYER-2015-470667

PATIENT
  Age: 65 Year
  Sex: Male

DRUGS (9)
  1. OMEPRAZOLE. [Concomitant]
     Active Substance: OMEPRAZOLE
     Dosage: UNK
  2. TRAMADOL HYDROCHLORIDE. [Concomitant]
     Active Substance: TRAMADOL HYDROCHLORIDE
     Dosage: UNK
  3. OXYCONTIN [Concomitant]
     Active Substance: OXYCODONE HYDROCHLORIDE
     Dosage: UNK
  4. NEXAVAR [Suspect]
     Active Substance: SORAFENIB
     Indication: HEPATOCELLULAR CARCINOMA
     Dosage: 400 MG, BID (200 MG/2 TABS TWICE A DAY
     Route: 048
     Dates: start: 20151023
  5. NEXAVAR [Suspect]
     Active Substance: SORAFENIB
     Indication: HEPATOCELLULAR CARCINOMA
     Dosage: DOSE DECREASED TO 200 MG, QD
     Route: 048
     Dates: start: 20151114
  6. ALPRAZOLAM. [Concomitant]
     Active Substance: ALPRAZOLAM
     Dosage: UNK
  7. NEXAVAR [Suspect]
     Active Substance: SORAFENIB
     Indication: HEPATOCELLULAR CARCINOMA
     Dosage: 400 MG, BID
     Route: 048
  8. ZOFRAN [Concomitant]
     Active Substance: ONDANSETRON HYDROCHLORIDE
     Dosage: UNK
  9. HYDROCHLOROTHIAZIDE W/TRIAMTERENE [Concomitant]
     Active Substance: HYDROCHLOROTHIAZIDE\TRIAMTERENE
     Dosage: UNK

REACTIONS (6)
  - Palmar erythema [Not Recovered/Not Resolved]
  - Alopecia [Not Recovered/Not Resolved]
  - Platelet count decreased [Not Recovered/Not Resolved]
  - Platelet count decreased [Not Recovered/Not Resolved]
  - Off label use [None]
  - Surgery [Unknown]

NARRATIVE: CASE EVENT DATE: 20151113
